FAERS Safety Report 8379694-4 (Version None)
Quarter: 2012Q2

REPORT INFORMATION
  Report Type: 
  Country: None (occurrence: None)
  Receive Date: 20120523
  Receipt Date: 20120517
  Transmission Date: 20120825
  Serious: Yes (Death)
  Sender: FDA-Public Use
  Company Number: JP-ASTELLAS-2012JP003181

PATIENT
  Sex: Female

DRUGS (11)
  1. ALENDRONATE SODIUM [Concomitant]
     Indication: OSTEOPOROSIS
     Dosage: 35 MG, WEEKLY
     Route: 048
     Dates: end: 20120410
  2. RHEUMATREX [Concomitant]
     Indication: RHEUMATOID ARTHRITIS
     Dosage: 30 MG, WEEKLY
     Route: 048
     Dates: end: 20120410
  3. PROGRAF [Suspect]
     Indication: RHEUMATOID ARTHRITIS
     Dosage: 1 MG, UID/QD
     Route: 048
     Dates: start: 20120327, end: 20120408
  4. CELEBREX [Concomitant]
     Dosage: 200 MG, UNKNOWN/D
     Route: 048
  5. VITAMIN B12 [Concomitant]
     Indication: NEUROPATHY PERIPHERAL
     Dosage: 250 UG, BID
     Route: 048
     Dates: end: 20120410
  6. OMEPRAZOLE [Concomitant]
     Indication: GASTRIC ULCER
     Dosage: 20 MG, UID/QD
     Route: 048
     Dates: end: 20120410
  7. PREDNISOLONE [Concomitant]
     Indication: RHEUMATOID ARTHRITIS
     Dosage: 2.5 MG, UID/QD
     Route: 048
     Dates: end: 20120410
  8. MUCOSTA [Concomitant]
     Indication: GASTRIC ULCER
     Dosage: 100 MG, BID
     Route: 048
     Dates: end: 20120410
  9. PROGRAF [Suspect]
     Dosage: UNK
     Route: 048
     Dates: end: 20110326
  10. ALFAROL [Concomitant]
     Indication: OSTEOPOROSIS
     Dosage: 1 UG, UID/QD
     Route: 048
     Dates: end: 20120410
  11. FOLIAMIN [Concomitant]
     Indication: ANAEMIA
     Dosage: 10 MG, UID/QD
     Route: 048
     Dates: end: 20120410

REACTIONS (2)
  - RENAL FAILURE [None]
  - SEPSIS [None]
